FAERS Safety Report 7659627-6 (Version None)
Quarter: 2011Q3

REPORT INFORMATION
  Report Type: 
  Country: None (occurrence: None)
  Receive Date: 20110805
  Receipt Date: 20110803
  Transmission Date: 20111222
  Serious: Yes (Hospitalization)
  Sender: FDA-Public Use
  Company Number: US-MERCK-1105USA02527

PATIENT
  Age: 78 Year
  Sex: Female

DRUGS (2)
  1. FOSAMAX [Suspect]
     Indication: OSTEOPOROSIS
     Route: 048
     Dates: start: 19980101, end: 20100101
  2. VITAMIN D (UNSPECIFIED) [Concomitant]
     Route: 048

REACTIONS (7)
  - UTERINE DISORDER [None]
  - DEEP VEIN THROMBOSIS POSTOPERATIVE [None]
  - FEMUR FRACTURE [None]
  - ADVERSE EVENT [None]
  - HYPERTENSION [None]
  - HAEMATOMA [None]
  - POST PROCEDURAL PULMONARY EMBOLISM [None]
